FAERS Safety Report 5018226-5 (Version None)
Quarter: 2006Q2

REPORT INFORMATION
  Report Type: 
  Country: None (occurrence: None)
  Receive Date: 20060530
  Receipt Date: 20060518
  Transmission Date: 20061013
  Serious: Yes (Other)
  Sender: FDA-Public Use
  Company Number: 2006066592

PATIENT
  Age: 46 Year
  Sex: Male
  Weight: 77.1115 kg

DRUGS (7)
  1. NARDIL [Suspect]
     Indication: DEPRESSION
     Dosage: 75 MEQ (15 MG, 1 IN 1 D),
  2. LORTAB [Suspect]
     Indication: PAIN
  3. TOPAMAX [Suspect]
     Indication: ILL-DEFINED DISORDER
  4. LYRICA [Suspect]
     Indication: ILL-DEFINED DISORDER
  5. NEURONTIN [Suspect]
     Indication: ILL-DEFINED DISORDER
  6. ATIVAN [Concomitant]
  7. ACCUPRIL [Concomitant]

REACTIONS (4)
  - DRUG INTERACTION [None]
  - ILL-DEFINED DISORDER [None]
  - PAIN [None]
  - ROAD TRAFFIC ACCIDENT [None]
